FAERS Safety Report 16062557 (Version 1)
Quarter: 2019Q1

REPORT INFORMATION
  Report Type: Spontaneous
  Country: US (occurrence: US)
  Receive Date: 20190312
  Receipt Date: 20190312
  Transmission Date: 20190418
  Serious: No
  Sender: FDA-Public Use
  Company Number: US-SA-2019SA065585

PATIENT
  Age: 66 Year
  Sex: Male

DRUGS (1)
  1. LANTUS SOLOSTAR [Suspect]
     Active Substance: INSULIN GLARGINE
     Dosage: 20 U, EVERY MORNING AND NORMALLY USES 19-22 UNITS DEPENDING ON HIS BLOOD SUGAR
     Route: 065

REACTIONS (1)
  - Wrong technique in product usage process [Unknown]
